FAERS Safety Report 7359563-9 (Version None)
Quarter: 2011Q2

REPORT INFORMATION
  Report Type: 
  Country: None (occurrence: None)
  Receive Date: 20110310
  Receipt Date: 20110225
  Transmission Date: 20111010
  Serious: Yes (Life-Threatening, Hospitalization)
  Sender: FDA-Public Use
  Company Number: 2011MA001926

PATIENT
  Age: 65 Year
  Sex: Female

DRUGS (8)
  1. METFORMIN HYDROCHLORIDE [Suspect]
     Indication: TYPE 2 DIABETES MELLITUS
     Dosage: 1 G; TID
  2. AMARYL [Concomitant]
  3. PROBECID [Concomitant]
  4. LASIX [Concomitant]
  5. SOMAC [Concomitant]
  6. VASERETIC [Suspect]
     Indication: HYPERTENSION
     Dosage: 1 DF; QD; PO
     Route: 048
  7. SIMVASTATIN [Concomitant]
  8. METOPROLOL TARTRATE [Concomitant]

REACTIONS (3)
  - UNEVALUABLE EVENT [None]
  - GASTROENTERITIS [None]
  - ANURIA [None]
